FAERS Safety Report 24240223 (Version 1)
Quarter: 2024Q3

REPORT INFORMATION
  Report Type: Spontaneous
  Country: CN (occurrence: CN)
  Receive Date: 20240822
  Receipt Date: 20240822
  Transmission Date: 20241016
  Serious: Yes (Hospitalization, Other)
  Sender: MERCK
  Company Number: CN-009507513-2408CHN005804

PATIENT
  Age: 93 Year
  Sex: Male
  Weight: 69 kg

DRUGS (3)
  1. NOXAFIL [Suspect]
     Active Substance: POSACONAZOLE
     Indication: Anti-infective therapy
     Dosage: 300 MG, QD (ALSO REPORTED BID FROM 14-JUN-2024, CONFLICT INFORMATION), ORALLY
     Route: 048
     Dates: start: 20240530, end: 20240622
  2. VFEND [Suspect]
     Active Substance: VORICONAZOLE
     Indication: Anti-infective therapy
     Dosage: 0.2 G, Q12H, ORALLY
     Route: 048
     Dates: start: 20240530, end: 20240530
  3. CEFUROXIME AXETIL [Suspect]
     Active Substance: CEFUROXIME AXETIL
     Indication: Anti-infective therapy
     Dosage: 0.25 G, TID (ALSO REPORTED AS BID, FOR 3 DAYS, CONFLICT INFORMATION), ORALLY
     Route: 048
     Dates: start: 20240521, end: 20240521

REACTIONS (3)
  - Clostridium difficile infection [Recovering/Resolving]
  - Therapeutic product effect incomplete [Unknown]
  - Inappropriate schedule of product administration [Unknown]

NARRATIVE: CASE EVENT DATE: 20240530
